FAERS Safety Report 16212398 (Version 1)
Quarter: 2019Q2

REPORT INFORMATION
  Report Type: Spontaneous
  Country: US (occurrence: US)
  Receive Date: 20190314
  Receipt Date: 20190314
  Transmission Date: 20190711
  Serious: No
  Sender: FDA-Public Use
  Company Number: None

PATIENT
  Age: 24 Year
  Sex: Female
  Weight: 92.99 kg

DRUGS (6)
  1. SANDOZ PATCH [Concomitant]
  2. ESTRADIOL-ESTROGEL PATCH [Concomitant]
  3. VIVELLE-DOT [Suspect]
     Active Substance: ESTRADIOL
     Indication: OVARIAN CANCER
     Route: 062
  4. MYLAN PATCH [Concomitant]
  5. CINDIOS ESTROGEN PILLS [Concomitant]
  6. MINIVELLE [Suspect]
     Active Substance: ESTRADIOL

REACTIONS (8)
  - Mood swings [None]
  - Nausea [None]
  - Migraine [None]
  - Muscle spasms [None]
  - Malaise [None]
  - Hot flush [None]
  - Depression [None]
  - Headache [None]
